FAERS Safety Report 8096954-5 (Version None)
Quarter: 2012Q1

REPORT INFORMATION
  Report Type: 
  Country: None (occurrence: None)
  Receive Date: 20120129
  Receipt Date: 20111109
  Transmission Date: 20120608
  Serious: No
  Sender: FDA-Public Use
  Company Number: US-ABBOTT-11P-163-0843551-00

PATIENT
  Age: 59 Year
  Sex: Female

DRUGS (11)
  1. IMURAN [Concomitant]
     Indication: CROHN'S DISEASE
  2. SYNTHROID [Concomitant]
     Indication: HYPOTHYROIDISM
  3. CALTRATE [Concomitant]
     Indication: PRODUCT USED FOR UNKNOWN INDICATION
  4. VITAMIN B-12 [Concomitant]
     Indication: PRODUCT USED FOR UNKNOWN INDICATION
     Dosage: SHOT
  5. VITAMIN B-12 [Concomitant]
     Dosage: AS NEEDED
  6. LIALDA [Concomitant]
     Indication: CROHN'S DISEASE
  7. POTASSIUM [Concomitant]
     Indication: SUPPLEMENTATION THERAPY
  8. FOSAMAX [Concomitant]
     Indication: OSTEOPOROSIS
  9. HUMIRA [Suspect]
     Indication: CROHN'S DISEASE
     Dates: start: 20110714
  10. FOLIC ACID [Concomitant]
     Indication: PRODUCT USED FOR UNKNOWN INDICATION
  11. VITAMIN C AND D [Concomitant]
     Indication: PRODUCT USED FOR UNKNOWN INDICATION

REACTIONS (9)
  - INJECTION SITE PAIN [None]
  - INJECTION SITE PRURITUS [None]
  - INJECTION SITE NODULE [None]
  - INJECTION SITE ERYTHEMA [None]
  - INAPPROPRIATE SCHEDULE OF DRUG ADMINISTRATION [None]
  - PLATELET COUNT DECREASED [None]
  - DRUG DISPENSING ERROR [None]
  - INJECTION SITE HAEMORRHAGE [None]
  - INCORRECT DOSE ADMINISTERED [None]
